FAERS Safety Report 10151953 (Version 1)
Quarter: 2014Q2

REPORT INFORMATION
  Report Type: Spontaneous
  Country: US (occurrence: US)
  Receive Date: 20140505
  Receipt Date: 20140505
  Transmission Date: 20141212
  Serious: Yes (Hospitalization, Other)
  Sender: FDA-Public Use
  Company Number: US-ELI_LILLY_AND_COMPANY-US201404009480

PATIENT
  Age: 60 Year
  Sex: Female

DRUGS (10)
  1. HUMALOG LISPRO [Suspect]
     Indication: DIABETES MELLITUS
     Dosage: UNK
     Route: 058
     Dates: start: 1998
  2. BACLOFEN [Concomitant]
  3. RANITIDINE [Concomitant]
  4. XANAX [Concomitant]
  5. SIMVASTATIN [Concomitant]
  6. CALTRATE [Concomitant]
  7. VITAMIN D3 [Concomitant]
  8. TRAZODONE [Concomitant]
  9. ASPIRIN [Concomitant]
  10. VITAMIN B [Concomitant]

REACTIONS (6)
  - Strabismus [Unknown]
  - Eye haemorrhage [Unknown]
  - Blood glucose increased [Recovered/Resolved]
  - Drug ineffective [Recovered/Resolved]
  - Cataract [Unknown]
  - Tenosynovitis stenosans [Unknown]
